FAERS Safety Report 4503822-1 (Version None)
Quarter: 2004Q4

REPORT INFORMATION
  Report Type: 
  Country: None (occurrence: None)
  Receive Date: 20041117
  Receipt Date: 20041101
  Transmission Date: 20050328
  Serious: Yes (Death, Other)
  Sender: FDA-Public Use
  Company Number: US-MERCK-0411USA00169

PATIENT
  Age: 39 Year
  Sex: Female

DRUGS (2)
  1. VIOXX [Suspect]
     Indication: RHEUMATOID ARTHRITIS
     Route: 048
     Dates: start: 20040901, end: 20040924
  2. CELEBREX [Concomitant]
     Route: 065
     Dates: start: 20040901

REACTIONS (3)
  - INTRACARDIAC THROMBUS [None]
  - MYOCARDIAL INFARCTION [None]
  - SUDDEN CARDIAC DEATH [None]
